FAERS Safety Report 5079135-9 (Version None)
Quarter: 2006Q3

REPORT INFORMATION
  Report Type: 
  Country: None (occurrence: None)
  Receive Date: 20060814
  Receipt Date: 20060313
  Transmission Date: 20061208
  Serious: Yes (Other)
  Sender: FDA-Public Use
  Company Number: US-AVENTIS-200612343US

PATIENT
  Sex: Female

DRUGS (4)
  1. CARAC [Suspect]
     Indication: ACTINIC KERATOSIS
     Dosage: DOSE: UNKNOWN
     Route: 061
     Dates: start: 20060217, end: 20060307
  2. COUMADIN [Concomitant]
     Dosage: DOSE: UNKNOWN
  3. TOPICORT [Concomitant]
     Dosage: DOSE: UNKNOWN
  4. GLUCOSAMINE W/CHONDROITIN SULFATES [Concomitant]
     Dosage: DOSE: UNKNOWN

REACTIONS (7)
  - APPLICATION SITE BLEEDING [None]
  - APPLICATION SITE DISCOLOURATION [None]
  - APPLICATION SITE ERYTHEMA [None]
  - APPLICATION SITE PAIN [None]
  - APPLICATION SITE REACTION [None]
  - MUSCULOSKELETAL STIFFNESS [None]
  - PAIN [None]
